FAERS Safety Report 20460973 (Version 1)
Quarter: 2022Q1

REPORT INFORMATION
  Report Type: Spontaneous
  Country: US (occurrence: US)
  Receive Date: 20220211
  Receipt Date: 20220211
  Transmission Date: 20220424
  Serious: No
  Sender: FDA-Public Use
  Company Number: US-PERRIGO-21US002448

PATIENT
  Sex: Female
  Weight: 65.76 kg

DRUGS (5)
  1. LOPERAMIDE HYDROCHLORIDE [Suspect]
     Active Substance: LOPERAMIDE HYDROCHLORIDE
     Indication: Diarrhoea
     Dosage: 4 MG  TO 6 MG, PRN
     Route: 048
     Dates: start: 2016
  2. LISINOPRIL [Concomitant]
     Active Substance: LISINOPRIL
     Indication: Hypertension
     Dosage: UNKNOWN, UNKNOWN
     Route: 065
  3. ATORVASTATIN                       /01326102/ [Concomitant]
     Indication: Blood cholesterol increased
     Dosage: UNKNOWN, UNKNOWN
     Route: 065
  4. LEVOTHYROXINE [Concomitant]
     Active Substance: LEVOTHYROXINE
     Indication: Hypothyroidism
     Dosage: UNKNOWN, UNKNOWN
     Route: 065
  5. AMLODIPINE [Concomitant]
     Active Substance: AMLODIPINE BESYLATE
     Indication: Hypertension
     Dosage: UNKNOWN, UNKNOWN
     Route: 065

REACTIONS (3)
  - Balance disorder [Not Recovered/Not Resolved]
  - Intentional product use issue [Not Recovered/Not Resolved]
  - Incorrect product administration duration [Not Recovered/Not Resolved]

NARRATIVE: CASE EVENT DATE: 20160101
